FAERS Safety Report 8282611-9 (Version None)
Quarter: 2012Q2

REPORT INFORMATION
  Report Type: 
  Country: None (occurrence: None)
  Receive Date: 20120413
  Receipt Date: 20120329
  Transmission Date: 20120825
  Serious: Yes (Hospitalization)
  Sender: FDA-Public Use
  Company Number: US-FRI-1000029449

PATIENT
  Age: 26 Year
  Sex: Female

DRUGS (5)
  1. VIIBRYD [Suspect]
  2. WELLBUTRIN [Concomitant]
     Indication: DEPRESSION
  3. VIIBRYD [Suspect]
     Dosage: 20 MG
     Route: 048
     Dates: end: 20120328
  4. VIIBRYD [Suspect]
     Indication: DEPRESSION
     Dosage: 10  MG
     Route: 048
     Dates: start: 20120101
  5. VIIBRYD [Suspect]

REACTIONS (4)
  - SUICIDAL IDEATION [None]
  - APATHY [None]
  - MENTAL DISORDER [None]
  - AGGRESSION [None]
